FAERS Safety Report 10067173 (Version 1)
Quarter: 2014Q2

REPORT INFORMATION
  Report Type: Spontaneous
  Country: US (occurrence: None)
  Receive Date: 20140407
  Receipt Date: 20140407
  Transmission Date: 20141212
  Serious: Yes (Hospitalization)
  Sender: FDA-Public Use
  Company Number: AUR-APL-2014-04113

PATIENT
  Age: 76 Year
  Sex: Female

DRUGS (1)
  1. TRIMETHOPRIM+SULFAMETHOXAZOLE [Suspect]
     Indication: PROPHYLAXIS

REACTIONS (8)
  - Lip swelling [None]
  - Pruritus [None]
  - Ear pain [None]
  - Pyrexia [None]
  - Heart rate increased [None]
  - Blood pressure decreased [None]
  - Throat irritation [None]
  - Anaphylactic reaction [None]
